FAERS Safety Report 5587711-X (Version None)
Quarter: 2007Q4

REPORT INFORMATION
  Report Type: 
  Country: None (occurrence: None)
  Receive Date: 20071207
  Receipt Date: 20071012
  Transmission Date: 20080405
  Serious: Yes (Other)
  Sender: FDA-Public Use
  Company Number: 07-424

PATIENT
  Age: 63 Year
  Sex: Female
  Weight: 63.5036 kg

DRUGS (2)
  1. ALEVE [Suspect]
     Indication: PAIN
     Dosage: DAILY, ORAL
     Route: 048
     Dates: start: 20070901
  2. ASPIRIN [Concomitant]

REACTIONS (4)
  - ASTHENIA [None]
  - CHEST DISCOMFORT [None]
  - CRYING [None]
  - DYSPNOEA [None]
